FAERS Safety Report 13453518 (Version 1)
Quarter: 2017Q2

REPORT INFORMATION
  Report Type: Spontaneous
  Country: US (occurrence: US)
  Receive Date: 20170418
  Receipt Date: 20170418
  Transmission Date: 20170830
  Serious: No
  Sender: FDA-Public Use
  Company Number: US-TEVA-760473ACC

PATIENT
  Age: 28 Year
  Sex: Female
  Weight: 74.91 kg

DRUGS (1)
  1. PLAN B ONE-STEP [Suspect]
     Active Substance: LEVONORGESTREL
     Indication: POST COITAL CONTRACEPTION
     Dates: start: 20170410, end: 20170410

REACTIONS (4)
  - Abdominal distension [Unknown]
  - Malaise [Unknown]
  - Vomiting [Recovered/Resolved]
  - Cough [Unknown]

NARRATIVE: CASE EVENT DATE: 20170410
